FAERS Safety Report 18639188 (Version 1)
Quarter: 2020Q4

REPORT INFORMATION
  Report Type: Other
  Country: US (occurrence: US)
  Receive Date: 20201218
  Receipt Date: 20201218
  Transmission Date: 20210114
  Serious: Yes (Hospitalization)
  Sender: FDA-Public Use
  Company Number: US-ROCHE-2733418

PATIENT
  Sex: Female

DRUGS (2)
  1. XELODA [Suspect]
     Active Substance: CAPECITABINE
     Indication: MALIGNANT NEOPLASM OF UNKNOWN PRIMARY SITE
  2. XELODA [Suspect]
     Active Substance: CAPECITABINE
     Indication: LUNG NEOPLASM MALIGNANT
     Dosage: TAKE 3 TABLET(S) BY MOUTH TWICE A DAY WITH FOOD 2 WEEK(S) ON, 1 WEEK(S) OFF
     Route: 048

REACTIONS (3)
  - Off label use [Unknown]
  - Fracture [Unknown]
  - Intentional product use issue [Unknown]
